FAERS Safety Report 6685435-9 (Version None)
Quarter: 2010Q2

REPORT INFORMATION
  Report Type: 
  Country: None (occurrence: None)
  Receive Date: 20100419
  Receipt Date: 20100415
  Transmission Date: 20101027
  Serious: Yes (Hospitalization, Other)
  Sender: FDA-Public Use
  Company Number: US-ASTRAZENECA-2007UW18876

PATIENT
  Age: 19815 Day
  Sex: Female
  Weight: 77.1 kg

DRUGS (16)
  1. SEROQUEL [Suspect]
     Indication: DEPRESSION
     Dosage: 25-100MG
     Route: 048
     Dates: start: 19990723
  2. SEROQUEL [Suspect]
     Indication: ANXIETY
     Dosage: 25-100MG
     Route: 048
     Dates: start: 19990723
  3. SEROQUEL [Suspect]
     Route: 048
     Dates: start: 20000331, end: 20041022
  4. SEROQUEL [Suspect]
     Route: 048
     Dates: start: 20000331, end: 20041022
  5. CLONAZEPAM [Concomitant]
     Dates: start: 19990723
  6. CLONAZEPAM [Concomitant]
     Route: 048
     Dates: start: 20090302
  7. TRAZODONE [Concomitant]
     Dosage: 50 MG, 4 AT HS
     Dates: start: 19990723
  8. TRAZODONE [Concomitant]
     Dosage: TAKE TWO TABLETS
     Route: 048
     Dates: start: 20090315
  9. CLOMIPRAMINE HCL [Concomitant]
     Dosage: 15 MG, 4 AT HS
     Dates: start: 19990723
  10. IBUPROFEN [Concomitant]
     Dates: start: 20020815
  11. KETOROLAC TROMETHAMINE [Concomitant]
     Route: 048
     Dates: start: 20020815
  12. PRAVASTATIN SODIUM [Concomitant]
     Dosage: TAKE ONE AND HALF TABLET
     Route: 048
     Dates: start: 20090217
  13. DILTIAZEM HCL [Concomitant]
     Dosage: TAKEONE CAPSULE
     Route: 048
     Dates: start: 20090217
  14. ZYPREXA [Concomitant]
     Dosage: TAKE ONE TABLET
     Route: 048
  15. MIRTAZAPINE [Concomitant]
     Route: 048
     Dates: start: 20090301
  16. GABAPENTIN [Concomitant]
     Dosage: TAKE ONE CAPSULE
     Route: 048
     Dates: start: 20090307

REACTIONS (5)
  - BREAST CANCER [None]
  - BREAST OPERATION [None]
  - CHOLELITHIASIS [None]
  - DIABETES MELLITUS [None]
  - GALLBLADDER OPERATION [None]
